FAERS Safety Report 7384338-4 (Version None)
Quarter: 2011Q1

REPORT INFORMATION
  Report Type: 
  Country: None (occurrence: None)
  Receive Date: 20110330
  Receipt Date: 20110323
  Transmission Date: 20110831
  Serious: Yes (Death, Life-Threatening, Hospitalization, Other)
  Sender: FDA-Public Use
  Company Number: FR-PFIZER INC-2010147105

PATIENT
  Age: 72 Year
  Sex: Male
  Weight: 70 kg

DRUGS (73)
  1. HYDROCORTISONE [Concomitant]
     Indication: PRODUCT USED FOR UNKNOWN INDICATION
     Dosage: 50 MG, 3X/DAY
     Route: 042
     Dates: start: 20101011, end: 20101013
  2. PROPOFOL [Concomitant]
     Indication: SEDATION
     Dosage: 100 MG/HR, CONTINUOUS EVERY DURING 19 HRS
     Route: 042
     Dates: start: 20101001, end: 20101002
  3. SUFENTANIL CITRATE [Concomitant]
     Indication: SEDATION
     Dosage: 4 MG/HR CONTINUOUS
     Route: 042
     Dates: start: 20101001, end: 20101003
  4. IPRATROPIUM BROMIDE [Concomitant]
     Indication: BRONCHOSPASM
     Dosage: 0.5 MG, 3X/DAY
     Route: 045
     Dates: start: 20101021, end: 20101118
  5. AMIODARONE [Concomitant]
     Dosage: 300 MG, CONTINUOUS
     Route: 042
     Dates: start: 20101002, end: 20101011
  6. ALBUMINAR-20 [Concomitant]
     Indication: HYPOALBUMINAEMIA
     Dosage: 100 ML, 3X/DAY
     Route: 042
     Dates: start: 20101001, end: 20101003
  7. ALBUMINAR-20 [Concomitant]
     Dosage: 200 ML, 1X/DAY
     Route: 042
     Dates: start: 20101005, end: 20101005
  8. ESOMEPRAZOLE [Concomitant]
     Indication: PROPHYLAXIS AGAINST GASTROINTESTINAL ULCER
     Dosage: 40 MG, 2X/DAY
     Route: 042
     Dates: start: 20101001, end: 20101011
  9. SERPASIL-ESIDRIX [Concomitant]
     Indication: SEDATION
     Dosage: 100 MG, 1X/DAY
     Route: 042
     Dates: start: 20101001, end: 20101002
  10. ERYTHROMYCIN [Concomitant]
     Indication: GASTROINTESTINAL HYPERMOTILITY
     Dosage: 250 MG, 3X/DAY
     Route: 042
     Dates: start: 20101010, end: 20101012
  11. VANCOMYCIN [Concomitant]
     Indication: PERITONITIS
     Dosage: 2 G/L(2GM,CONTINUOUS)
     Route: 042
     Dates: start: 20101002, end: 20101018
  12. HEPARIN [Concomitant]
     Dosage: 550 IU, DAILY
     Route: 042
     Dates: start: 20101010, end: 20101011
  13. IPRATROPIUM BROMIDE [Concomitant]
     Indication: BRONCHIAL DISORDER
     Dosage: 0.5 MG, 4X/DAY
     Route: 045
     Dates: start: 20101001, end: 20101006
  14. AMIODARONE [Concomitant]
     Indication: ARRHYTHMIA
     Dosage: 300 MG, CONTINUOUS DURING 3 HRS
     Route: 042
     Dates: start: 20101002, end: 20101002
  15. ALBUMINAR-20 [Concomitant]
     Dosage: 100 ML, 1X/DAY
     Route: 042
     Dates: start: 20101009, end: 20101009
  16. ALBUMINAR-20 [Concomitant]
     Dosage: 100 ML, 2X/DAY
     Route: 042
     Dates: start: 20101015, end: 20101020
  17. AMIKACIN [Concomitant]
     Indication: PERITONITIS
     Dosage: 1500 MG, 1X/DAY
     Route: 042
     Dates: start: 20101001, end: 20101002
  18. DOBUTAMIN ^HEXAL^ [Concomitant]
     Indication: CARDIAC FAILURE
     Dosage: 25 MG/HR
     Route: 042
     Dates: start: 20101002, end: 20101003
  19. EPINEPHRINE [Concomitant]
     Indication: SEPTIC SHOCK
     Dosage: 50 MG, (CONTINUOUS
     Route: 042
     Dates: start: 20101003, end: 20101010
  20. LEVOCARNITINE [Concomitant]
     Indication: SUPPLEMENTATION THERAPY
     Dosage: 1 G, 3X/DAY
     Route: 042
     Dates: start: 20101014
  21. DROTRECOGIN ALFA [Concomitant]
  22. FUROSEMIDE [Concomitant]
     Indication: RENAL FAILURE
     Dosage: 40 MG, CONTINUOUS DURING 3 HRS
     Route: 042
     Dates: start: 20101002, end: 20101002
  23. CALCIUM CHLORIDE ANHYDROUS AND CALCIUM CHLORIDE DIHYDRATE [Concomitant]
     Indication: HYPOCALCAEMIA
     Dosage: 2 G, CONTINUOUSLY 10 HRS
     Route: 042
     Dates: start: 20101002, end: 20101002
  24. IMIPENEM [Concomitant]
     Indication: PERITONITIS
     Dosage: 1000 MG, 1X/DAY
     Route: 042
     Dates: start: 20101001, end: 20101002
  25. ALFENTANIL HYDROCHLORIDE [Concomitant]
     Indication: ANALGESIC THERAPY
     Dosage: 0.25 MG, AS NEEDED
     Route: 042
     Dates: start: 20101001, end: 20101015
  26. BUDESONIDE [Concomitant]
     Indication: BRONCHIAL DISORDER
     Dosage: 1 MG, UNK
     Route: 045
     Dates: start: 20101019, end: 20101019
  27. INTERFERON ALFA [Concomitant]
     Indication: ANAEMIA
     Dosage: 2 DF, 1X/DAY
     Route: 042
     Dates: start: 20101002, end: 20101003
  28. HEPARIN [Concomitant]
     Dosage: 5000 IU, DAILY
     Route: 042
     Dates: start: 20101013, end: 20101021
  29. ARGATROBAN [Suspect]
     Dosage: 10.5 UG/KG/MIN (42 ML/H)
     Route: 042
     Dates: start: 20101022, end: 20101022
  30. INSULIN PORCINE [Concomitant]
     Indication: DIABETES MELLITUS INADEQUATE CONTROL
     Dosage: VARIABLE
     Route: 042
     Dates: start: 20101001
  31. AMIODARONE [Concomitant]
     Dosage: 200 MG, 1X/DAY
     Route: 048
     Dates: start: 20101015, end: 20101019
  32. ASCORBIC ACID [Concomitant]
     Indication: MEDICAL DIET
     Dosage: 1 G, 3 IN A WEEK
     Route: 042
     Dates: start: 20101012
  33. VITAMIN K TAB [Concomitant]
     Indication: MEDICAL DIET
     Dosage: 10 MG, WEEKLY
     Route: 042
     Dates: start: 20101019
  34. PHOCYTAN [Concomitant]
     Indication: HYPOPHOSPHATAEMIA
     Dosage: 25 MG/HR,CONTINUOUS
     Route: 042
     Dates: start: 20101004, end: 20101004
  35. ESOMEPRAZOLE [Concomitant]
     Dosage: 40 MG, 1X/DAY
     Route: 042
     Dates: start: 20101011
  36. CYANOCOBALAMIN [Concomitant]
     Indication: MEDICAL DIET
     Dosage: 1000 MG, 1X/DAY
     Route: 042
     Dates: start: 20101014, end: 20101014
  37. NOREPINEPHRINE [Concomitant]
     Dosage: UNK
     Route: 042
     Dates: start: 20101001, end: 20101020
  38. HEPARIN [Concomitant]
     Indication: GASTRIC ULCER
     Dosage: 533 IU, DAILY
     Route: 042
     Dates: start: 20101007, end: 20101010
  39. LEVOCARNIL [Concomitant]
     Indication: SUPPLEMENTATION THERAPY
     Dosage: 1 G, 3X/DAY
     Route: 042
     Dates: start: 20101014
  40. FUROSEMIDE [Concomitant]
     Indication: RENAL IMPAIRMENT
     Dosage: 2 G, DAILY
     Route: 042
     Dates: start: 20101003, end: 20101111
  41. FOLIC ACID [Concomitant]
     Indication: MEDICAL DIET
     Dosage: 25 MG, CONTINUOUS
     Route: 042
     Dates: start: 20101014
  42. HETASTARCH [Concomitant]
     Indication: HYPOVOLAEMIA
     Dosage: 500 ML, VARIABLE
     Route: 042
     Dates: start: 20101001
  43. CISATRACURIUM [Concomitant]
     Indication: PRODUCT USED FOR UNKNOWN INDICATION
     Dosage: 10 MG, 1X/DAY
     Route: 042
     Dates: start: 20101001, end: 20101002
  44. AMIKACIN [Concomitant]
     Dosage: 1500 MG, 1X/DAY
     Route: 042
     Dates: start: 20101002, end: 20101008
  45. IMIPENEM [Concomitant]
     Dosage: 1000 MG, 1X/DAY
     Route: 042
     Dates: start: 20101020, end: 20101020
  46. RED BLOOD CELLS [Concomitant]
     Dosage: 2 DF, 1X/DAY
     Route: 042
     Dates: start: 20101018, end: 20101018
  47. INNOHEP [Concomitant]
     Indication: PULMONARY EMBOLISM
     Dosage: 0.6 ML, 1X/DAY
     Route: 058
     Dates: end: 20101001
  48. NOREPINEPHRINE [Concomitant]
     Indication: SEPTIC SHOCK
     Dosage: VARIABLE (MG, 1IN 1D)
     Route: 042
     Dates: start: 20101001, end: 20101020
  49. HEPARIN [Concomitant]
     Indication: PULMONARY EMBOLISM
     Dosage: 5333 IU, DAILY
     Route: 042
     Dates: start: 20101002, end: 20101002
  50. ARGATROBAN [Suspect]
     Indication: HEPARIN-INDUCED THROMBOCYTOPENIA
     Dosage: 0.5 UG/KG/MIN (2ML/HR)
     Route: 042
     Dates: start: 20101022, end: 20101022
  51. HYDROCORTISONE [Concomitant]
     Dosage: 100 MG, 4X/DAY
     Route: 042
     Dates: start: 20101001, end: 20101011
  52. HYDROCORTISONE [Concomitant]
     Dosage: 50 MG, 2X/DAY
     Route: 042
     Dates: start: 20101013, end: 20101020
  53. MIDAZOLAM [Concomitant]
     Indication: SEDATION
     Dosage: 50 MG, CONTINUOUS
     Route: 042
     Dates: start: 20101002, end: 20101003
  54. AMIODARONE [Concomitant]
     Dosage: 200 MG, 1X/DAY
     Route: 048
     Dates: start: 20101011, end: 20101019
  55. ASCORBIC ACID [Concomitant]
     Dosage: 1 G, 1X/DAY
     Route: 042
     Dates: start: 20101003, end: 20101012
  56. ESCITALOPRAM OXALATE [Concomitant]
     Indication: DEPRESSION
     Dosage: 10 MG, 1X/DAY
     Route: 048
     Dates: start: 20101021, end: 20101026
  57. IBUPROFEN [Concomitant]
     Indication: ANAEMIA
     Dosage: 100 MG, 2 IN 1 WEEK
     Route: 042
     Dates: start: 20101001, end: 20101005
  58. AMIKACIN [Concomitant]
     Dosage: 2 G, 1X/DAY
     Route: 042
     Dates: start: 20101003, end: 20101003
  59. ACETYLCYSTEINE [Concomitant]
     Indication: RENAL DISORDER
     Dosage: 0.6 G, 2X/DAY
     Route: 042
     Dates: start: 20101001, end: 20101003
  60. ACETAMINOPHEN [Concomitant]
     Indication: ANALGESIC THERAPY
     Dosage: 1 G, 3X/DAY
     Route: 042
     Dates: start: 20101009, end: 20101012
  61. HYDROXYZINE [Concomitant]
     Indication: ANXIOLYTIC THERAPY
     Dosage: 50 MG, 1X/DAY
     Route: 042
     Dates: start: 20101012, end: 20101014
  62. TIENAM [Concomitant]
  63. PRIMAXIN [Concomitant]
     Indication: PERITONITIS
     Dosage: 500 MG, 3X/DAY
     Route: 042
     Dates: start: 20101001, end: 20101028
  64. HYDROCORTISONE [Concomitant]
     Indication: SHOCK
     Dosage: 200 MG, DAILY
     Route: 042
     Dates: start: 20101001, end: 20101022
  65. SUFENTANIL CITRATE [Concomitant]
     Dosage: 5 MG/HR CONTINUOUS
     Route: 042
     Dates: start: 20101006, end: 20101006
  66. TERBUTALINE SULFATE [Concomitant]
     Indication: BRONCHIAL DISORDER
     Dosage: 5 MG, 4X/DAY
     Route: 045
     Dates: start: 20101001, end: 20101006
  67. TERBUTALINE SULFATE [Concomitant]
     Indication: BRONCHOSPASM
     Dosage: 5 MG, 3X/DAY
     Route: 045
     Dates: start: 20101021, end: 20101118
  68. ALBUMIN 4% [Concomitant]
     Indication: HYPOALBUMINAEMIA
     Dosage: 500 ML, 1X/DAY
     Route: 042
     Dates: start: 20101001, end: 20101004
  69. ALBUMIN 4% [Concomitant]
     Dosage: 500 ML, 1X/DAY
     Route: 042
     Dates: start: 20101011, end: 20101011
  70. ALBUMIN 4% [Concomitant]
     Dosage: 500 ML, 1X/DAY
     Route: 042
     Dates: start: 20101015, end: 20101015
  71. NEFOPAM [Concomitant]
     Indication: ANALGESIC THERAPY
     Dosage: 80 MG/J (80MG CONTINUOUS)
     Route: 042
     Dates: start: 20101009, end: 20101012
  72. HALOPERIDOL [Concomitant]
     Indication: SEDATION
     Dosage: 2 MG, 1X/DAY
     Route: 042
     Dates: start: 20101019, end: 20101019
  73. RED BLOOD CELLS [Concomitant]
     Indication: ANAEMIA
     Dosage: 2 DF, 1X/DAY
     Route: 042
     Dates: start: 20101005, end: 20101006

REACTIONS (9)
  - MULTI-ORGAN FAILURE [None]
  - COLITIS [None]
  - PNEUMATOSIS INTESTINALIS [None]
  - MOUTH HAEMORRHAGE [None]
  - EPISTAXIS [None]
  - SEPSIS [None]
  - MEDICATION ERROR [None]
  - ACUTE RESPIRATORY DISTRESS SYNDROME [None]
  - PERITONITIS [None]
